FAERS Safety Report 8203645-6 (Version None)
Quarter: 2012Q1

REPORT INFORMATION
  Report Type: 
  Country: None (occurrence: None)
  Receive Date: 20120308
  Receipt Date: 20120222
  Transmission Date: 20120608
  Serious: Yes (Death)
  Sender: FDA-Public Use
  Company Number: US-2012-10215

PATIENT
  Age: 25 Year
  Sex: Female

DRUGS (3)
  1. MELPHALAN HYDROCHLORIDE [Concomitant]
  2. FLUDARABINE PHOSPHATE [Concomitant]
  3. BUSULFAN [Suspect]
     Indication: STEM CELL TRANSPLANT
     Dosage: 0.8 MG/KG, Q6HR,

REACTIONS (1)
  - INFECTION [None]
